FAERS Safety Report 8819858 (Version 4)
Quarter: 2015Q3

REPORT INFORMATION
  Report Type: Report from Study
  Country: US (occurrence: US)
  Receive Date: 20121001
  Receipt Date: 20150713
  Transmission Date: 20151125
  Serious: Yes (Death, Other)
  Sender: FDA-Public Use
  Company Number: US-ROCHE-1130025

PATIENT
  Sex: Female

DRUGS (21)
  1. 5-FU [Concomitant]
     Active Substance: FLUOROURACIL
     Route: 065
  2. HERCEPTIN [Suspect]
     Active Substance: TRASTUZUMAB
     Route: 042
     Dates: start: 19981224
  3. TYLENOL [Concomitant]
     Active Substance: ACETAMINOPHEN
  4. REGLAN [Concomitant]
     Active Substance: METOCLOPRAMIDE HYDROCHLORIDE
     Route: 065
  5. AREDIA [Concomitant]
     Active Substance: PAMIDRONATE DISODIUM
     Route: 065
     Dates: end: 19981211
  6. HERCEPTIN [Suspect]
     Active Substance: TRASTUZUMAB
     Indication: BREAST CANCER METASTATIC
     Dosage: 4 MG PER KILOGRAM OVER 90 MINUTES, LOADING DOSE
     Route: 042
     Dates: start: 19981015
  7. HERCEPTIN [Suspect]
     Active Substance: TRASTUZUMAB
     Route: 042
     Dates: start: 19981130
  8. HERCEPTIN [Suspect]
     Active Substance: TRASTUZUMAB
     Route: 042
     Dates: start: 19981211
  9. ZOFRAN [Concomitant]
     Active Substance: ONDANSETRON HYDROCHLORIDE
  10. ATIVAN [Concomitant]
     Active Substance: LORAZEPAM
     Dosage: AT NIGHT
     Route: 065
  11. MORPHINE [Concomitant]
     Active Substance: MORPHINE
     Route: 048
  12. HERCEPTIN [Suspect]
     Active Substance: TRASTUZUMAB
     Route: 042
     Dates: start: 19981029
  13. ZOVIRAX [Concomitant]
     Active Substance: ACYCLOVIR
  14. HERCEPTIN [Suspect]
     Active Substance: TRASTUZUMAB
     Dosage: 2 MG PER KILOGRAM EVERY WEEK
     Route: 042
     Dates: start: 19981022
  15. HERCEPTIN [Suspect]
     Active Substance: TRASTUZUMAB
     Route: 042
     Dates: start: 19981218
  16. HERCEPTIN [Suspect]
     Active Substance: TRASTUZUMAB
     Route: 042
     Dates: start: 19981120
  17. HERCEPTIN [Suspect]
     Active Substance: TRASTUZUMAB
     Route: 042
     Dates: start: 19981127
  18. ATIVAN [Concomitant]
     Active Substance: LORAZEPAM
     Route: 065
  19. MORPHINE PUMP [Concomitant]
     Active Substance: MORPHINE
  20. HERCEPTIN [Suspect]
     Active Substance: TRASTUZUMAB
     Route: 042
     Dates: start: 19981231
  21. VELBAN [Concomitant]
     Active Substance: VINBLASTINE SULFATE

REACTIONS (20)
  - Mucosal inflammation [Unknown]
  - Decreased appetite [Recovered/Resolved]
  - Epistaxis [Recovered/Resolved]
  - Pruritus [Unknown]
  - Cough [Unknown]
  - Alopecia [Unknown]
  - Rash [Unknown]
  - Ill-defined disorder [Unknown]
  - Headache [Unknown]
  - Leukopenia [Unknown]
  - Herpes zoster [Recovered/Resolved]
  - Tachycardia [Unknown]
  - Death [Fatal]
  - Diarrhoea [Unknown]
  - Musculoskeletal chest pain [Recovered/Resolved]
  - Pain [Unknown]
  - Nausea [Unknown]
  - Sensory disturbance [Unknown]
  - Constipation [Unknown]
  - Weight increased [Unknown]
